FAERS Safety Report 4387002-9 (Version None)
Quarter: 2004Q2

REPORT INFORMATION
  Report Type: 
  Country: None (occurrence: None)
  Receive Date: 20040629
  Receipt Date: 20040629
  Transmission Date: 20050107
  Serious: Yes (Death)
  Sender: FDA-Public Use
  Company Number: None

PATIENT
  Age: 83 Year
  Sex: Female
  Weight: 82 kg

DRUGS (1)
  1. TAMOXIFEN 20 MG [Suspect]
     Indication: BREAST CANCER
     Dosage: 20 MG QDAY PO
     Route: 048
     Dates: start: 20000701, end: 20040315

REACTIONS (7)
  - ASCITES [None]
  - DISSEMINATED INTRAVASCULAR COAGULATION [None]
  - DYSPNOEA [None]
  - HODGKIN'S DISEASE [None]
  - NEOPLASM MALIGNANT [None]
  - OEDEMA PERIPHERAL [None]
  - SEPSIS [None]
